FAERS Safety Report 19050836 (Version 2)
Quarter: 2021Q2

REPORT INFORMATION
  Report Type: Spontaneous
  Country: FR (occurrence: FR)
  Receive Date: 20210324
  Receipt Date: 20210403
  Transmission Date: 20210717
  Serious: Yes (Other)
  Sender: FDA-Public Use
  Company Number: FR-AUROBINDO-AUR-APL-2021-007816

PATIENT
  Age: 56 Year
  Sex: Male

DRUGS (7)
  1. BRAFTOVI [Interacting]
     Active Substance: ENCORAFENIB
     Dosage: 450 MILLIGRAM, ONCE A DAY
     Route: 065
     Dates: start: 202005
  2. MEKTOVI [Suspect]
     Active Substance: BINIMETINIB
     Dosage: 90 MILLIGRAM, ONCE A DAY (45 MG, BID (2/DAY)
     Route: 065
     Dates: start: 202005
  3. AZITHROMYCIN ANHYDROUS. [Suspect]
     Active Substance: AZITHROMYCIN ANHYDROUS
     Indication: DENTAL CARIES
     Dosage: UNK
     Route: 065
  4. MEKTOVI [Suspect]
     Active Substance: BINIMETINIB
     Indication: METASTATIC MALIGNANT MELANOMA
     Dosage: 45 MILLIGRAM, TWO TIMES A DAY
     Route: 065
     Dates: start: 2020
  5. BRAFTOVI [Interacting]
     Active Substance: ENCORAFENIB
     Indication: METASTATIC MALIGNANT MELANOMA
     Dosage: 450 MILLIGRAM, ONCE A DAY
     Route: 065
     Dates: start: 2020
  6. ZOLMITRIPTAN. [Concomitant]
     Active Substance: ZOLMITRIPTAN
     Indication: MIGRAINE
     Dosage: UNK
     Route: 065
  7. AZITHROMYCIN ANHYDROUS. [Interacting]
     Active Substance: AZITHROMYCIN ANHYDROUS
     Indication: PULPITIS DENTAL
     Dosage: UNK, 3 DAYS OF TREATMENT
     Route: 065

REACTIONS (8)
  - Hypercholesterolaemia [Recovered/Resolved]
  - Drug interaction [Unknown]
  - Arthralgia [Unknown]
  - Pulpitis dental [Not Recovered/Not Resolved]
  - Erectile dysfunction [Not Recovered/Not Resolved]
  - Diarrhoea [Recovered/Resolved]
  - Headache [Not Recovered/Not Resolved]
  - Dental caries [Not Recovered/Not Resolved]

NARRATIVE: CASE EVENT DATE: 2020
